FAERS Safety Report 14937371 (Version 1)
Quarter: 2018Q2

REPORT INFORMATION
  Report Type: Spontaneous
  Country: US (occurrence: US)
  Receive Date: 20180507
  Receipt Date: 20180507
  Transmission Date: 20180711
  Serious: Yes (Hospitalization)
  Sender: FDA-Public Use
  Company Number: None

PATIENT
  Age: 33 Year
  Sex: Female
  Weight: 80.3 kg

DRUGS (7)
  1. MYCOPHENOLATE 750 MG BY MOUTH TWICE DAILY [Concomitant]
     Dates: start: 20180314
  2. THYMOGLOBULIN [Suspect]
     Active Substance: LAPINE T-LYMPHOCYTE IMMUNE GLOBULIN
     Indication: IMMUNOSUPPRESSANT DRUG THERAPY
     Dosage: ?          OTHER FREQUENCY:CUMULATIVE 4 DAYS;?
     Route: 041
     Dates: start: 20180314, end: 20180317
  3. NYSTATIN 100,000 UNITS/ML 5 ML SWISCH AND SWALLOW [Concomitant]
     Dates: start: 20180314
  4. FAMOTIDINE 20 MG BY MOUTH TWICE DAILY [Concomitant]
     Dates: start: 20180314
  5. PREDNISONE 10 MG BY MOUTH TWICE DAILY [Concomitant]
     Dates: start: 20180314
  6. TACROLIMUS 7 MG BY MOUTH TWICE DAILY [Concomitant]
     Dates: start: 20180314
  7. CLONIDINE 0.1 MG BY MNOUTH EVERY 6 HOURS AS NEEDED [Concomitant]
     Dates: start: 20180314

REACTIONS (5)
  - Joint swelling [None]
  - Arthralgia [None]
  - Product quality issue [None]
  - Pain in jaw [None]
  - Serum sickness [None]

NARRATIVE: CASE EVENT DATE: 20180325
